FAERS Safety Report 20009149 (Version 1)
Quarter: 2021Q4

REPORT INFORMATION
  Report Type: Spontaneous
  Country: US (occurrence: US)
  Receive Date: 20211028
  Receipt Date: 20211028
  Transmission Date: 20220303
  Serious: Yes (Disabling, Other)
  Sender: FDA-Public Use
  Company Number: US-BAYER-2021A239010

PATIENT
  Sex: Female

DRUGS (1)
  1. CIPRO [Suspect]
     Active Substance: CIPROFLOXACIN HYDROCHLORIDE
     Dosage: UNK, UNK
     Route: 048

REACTIONS (7)
  - Neuropathy peripheral [None]
  - Tendon rupture [None]
  - Pain [None]
  - Hypoaesthesia [None]
  - Burning sensation [None]
  - Paraesthesia [None]
  - Anaesthesia [None]
